FAERS Safety Report 8888821 (Version 1)
Quarter: 2012Q4

REPORT INFORMATION
  Report Type: 
  Country: US (occurrence: US)
  Receive Date: 20121106
  Receipt Date: 20121106
  Transmission Date: 20130627
  Serious: No
  Sender: FDA-Public Use
  Company Number: US-ASTRAZENECA-2012SE01302

PATIENT
  Sex: Male

DRUGS (8)
  1. LISINOPRIL [Suspect]
     Route: 048
  2. CRESTOR [Suspect]
     Route: 048
  3. PLAVIX [Concomitant]
  4. METOPROLOL [Concomitant]
  5. ASA [Concomitant]
  6. NITRO [Concomitant]
  7. STOOL SOFTNER [Concomitant]
  8. VENTOLIN [Concomitant]

REACTIONS (3)
  - Cough [Unknown]
  - Malaise [Unknown]
  - Tremor [Unknown]
